FAERS Safety Report 9416339 (Version 3)
Quarter: 2013Q4

REPORT INFORMATION
  Report Type: Report from Study
  Country: JP (occurrence: JP)
  Receive Date: 20130724
  Receipt Date: 20131227
  Transmission Date: 20140711
  Serious: Yes (Hospitalization, Other)
  Sender: FDA-Public Use
  Company Number: JP-ROCHE-1252070

PATIENT
  Age: 37 Year
  Sex: Male

DRUGS (12)
  1. VALGANCICLOVIR [Suspect]
     Indication: CYTOMEGALOVIRUS INFECTION
     Route: 048
     Dates: start: 20121005, end: 20121009
  2. FLUCONAZOLE [Suspect]
     Indication: MENINGITIS CRYPTOCOCCAL
     Route: 065
     Dates: start: 20120921, end: 20121023
  3. TRUVADA [Suspect]
     Indication: HIV INFECTION
     Dosage: 1 TAB
     Route: 048
     Dates: start: 20121010, end: 20121022
  4. KALETRA [Suspect]
     Indication: HIV INFECTION
     Route: 048
     Dates: start: 20121027, end: 20121112
  5. MYCOBUTIN [Suspect]
     Indication: PRODUCT USED FOR UNKNOWN INDICATION
     Route: 048
     Dates: start: 20121004, end: 20121016
  6. MYCOBUTIN [Suspect]
     Route: 048
     Dates: start: 20121017, end: 20121023
  7. FLORID [Concomitant]
     Route: 048
     Dates: start: 20120918, end: 20121023
  8. LANSOPRAZOLE [Concomitant]
     Route: 065
     Dates: start: 20120919, end: 20130331
  9. CLARITH [Concomitant]
     Route: 048
     Dates: start: 20121004, end: 20121023
  10. NEUTROGIN [Concomitant]
     Route: 051
     Dates: start: 20121009, end: 20121011
  11. RED BLOOD CELLS [Concomitant]
  12. FRESH FROZEN PLASMA [Concomitant]

REACTIONS (5)
  - Pancytopenia [Recovering/Resolving]
  - Renal disorder [Recovering/Resolving]
  - Liver disorder [Recovering/Resolving]
  - Enteritis [Recovered/Resolved]
  - Coagulopathy [Recovered/Resolved]
